FAERS Safety Report 15582032 (Version 4)
Quarter: 2018Q4

REPORT INFORMATION
  Report Type: Spontaneous
  Country: JP (occurrence: JP)
  Receive Date: 20181105
  Receipt Date: 20181129
  Transmission Date: 20190205
  Serious: Yes (Death)
  Sender: FDA-Public Use
  Company Number: JP-BEH-2018096515

PATIENT
  Age: 68 Year
  Sex: Male

DRUGS (1)
  1. KCENTRA [Suspect]
     Active Substance: COAGULATION FACTOR IX HUMAN\COAGULATION FACTOR VII HUMAN\COAGULATION FACTOR X HUMAN\PROTEIN C\PROTEIN S HUMAN\PROTHROMBIN
     Indication: HAEMORRHAGE INTRACRANIAL
     Dosage: 2000 IU, TOT
     Route: 042
     Dates: start: 20181020, end: 20181020

REACTIONS (2)
  - General physical condition decreased [Fatal]
  - Septic shock [Fatal]

NARRATIVE: CASE EVENT DATE: 20181025
